FAERS Safety Report 11679541 (Version 3)
Quarter: 2015Q4

REPORT INFORMATION
  Report Type: Spontaneous
  Country: US (occurrence: US)
  Receive Date: 20151027
  Receipt Date: 20151110
  Transmission Date: 20160304
  Serious: No
  Sender: FDA-Public Use
  Company Number: US-ELI_LILLY_AND_COMPANY-US201004007750

PATIENT
  Age: 71 Year
  Sex: Female

DRUGS (2)
  1. FORTEO [Suspect]
     Active Substance: TERIPARATIDE
     Indication: OSTEOPOROSIS
     Dosage: 20 UG, DAILY (1/D)
     Route: 058
     Dates: start: 200909
  2. FORTEO [Suspect]
     Active Substance: TERIPARATIDE
     Dosage: 20 UG, DAILY (1/D)
     Route: 058

REACTIONS (11)
  - Headache [Recovering/Resolving]
  - Nasopharyngitis [Recovering/Resolving]
  - Pain in jaw [Recovering/Resolving]
  - Memory impairment [Unknown]
  - Contusion [Unknown]
  - Pain [Recovering/Resolving]
  - Hyperphagia [Unknown]
  - Ear pain [Recovering/Resolving]
  - Neuralgia [Unknown]
  - Weight increased [Unknown]
  - Weight decreased [Recovering/Resolving]

NARRATIVE: CASE EVENT DATE: 2009
